FAERS Safety Report 22312017 (Version 1)
Quarter: 2023Q2

REPORT INFORMATION
  Report Type: Spontaneous
  Country: US (occurrence: US)
  Receive Date: 20230512
  Receipt Date: 20230512
  Transmission Date: 20230721
  Serious: Yes (Hospitalization, Disabling)
  Sender: FDA-Public Use
  Company Number: US-STRIDES ARCOLAB LIMITED-2022SP008655

PATIENT
  Age: 58 Year
  Sex: Male

DRUGS (8)
  1. MINOCYCLINE [Suspect]
     Active Substance: MINOCYCLINE HYDROCHLORIDE
     Indication: Pythium insidiosum infection
     Dosage: 100 MILLIGRAM (TWICE A DAY );
     Route: 048
  2. CASPOFUNGIN [Suspect]
     Active Substance: CASPOFUNGIN
     Indication: Pythium insidiosum infection
     Dosage: 50 MILLIGRAM (PER DAY)
     Route: 065
  3. POSACONAZOLE [Suspect]
     Active Substance: POSACONAZOLE
     Indication: Antifungal prophylaxis
     Dosage: 600 MILLIGRAM (LOADING DOSE WAS INITIATED   )
     Route: 048
  4. POSACONAZOLE [Suspect]
     Active Substance: POSACONAZOLE
     Indication: Pythium insidiosum infection
     Dosage: 300 MILLIGRAM (PER DAY)
     Route: 048
  5. POSACONAZOLE [Suspect]
     Active Substance: POSACONAZOLE
     Dosage: UNK
     Route: 065
  6. TERBINAFINE [Suspect]
     Active Substance: TERBINAFINE
     Indication: Pythium insidiosum infection
     Dosage: 250 MILLIGRAM (PER DAY );
     Route: 048
  7. AMPHOTERICIN B [Concomitant]
     Active Substance: AMPHOTERICIN B
     Indication: Antifungal prophylaxis
     Dosage: 5 MILLIGRAM/KILOGRAM (PER DAY)
     Route: 042
  8. ITRACONAZOLE [Concomitant]
     Active Substance: ITRACONAZOLE
     Indication: Pythium insidiosum infection
     Dosage: 200 MILLIGRAM (TWICE A DAY)
     Route: 048

REACTIONS (2)
  - Drug ineffective [Unknown]
  - Off label use [Unknown]
